FAERS Safety Report 7594558-1 (Version None)
Quarter: 2011Q3

REPORT INFORMATION
  Report Type: 
  Country: None (occurrence: None)
  Receive Date: 20110707
  Receipt Date: 20110624
  Transmission Date: 20111222
  Serious: Yes (Other)
  Sender: FDA-Public Use
  Company Number: US-CELGENEUS-163-21880-11063469

PATIENT
  Sex: Male
  Weight: 68.1 kg

DRUGS (3)
  1. REVLIMID [Suspect]
     Dosage: 10MG-5MG
     Route: 048
     Dates: start: 20100401
  2. REVLIMID [Suspect]
     Dosage: 15 MILLIGRAM
     Route: 048
     Dates: start: 20110501, end: 20110601
  3. REVLIMID [Suspect]
     Indication: MULTIPLE MYELOMA
     Dosage: 15 MILLIGRAM
     Route: 048
     Dates: start: 20100101

REACTIONS (2)
  - LOSS OF CONSCIOUSNESS [None]
  - ARRHYTHMIA [None]
